FAERS Safety Report 23059857 (Version 1)
Quarter: 2023Q4

REPORT INFORMATION
  Report Type: Spontaneous
  Country: HU (occurrence: None)
  Receive Date: 20231012
  Receipt Date: 20231012
  Transmission Date: 20240109
  Serious: Yes (Other)
  Sender: FDA-Public Use
  Company Number: 2023A226641

PATIENT
  Age: 70 Year
  Sex: Female

DRUGS (2)
  1. EVUSHELD [Suspect]
     Active Substance: CILGAVIMAB\TIXAGEVIMAB
     Indication: COVID-19
     Dosage: 150.0MG UNKNOWN
     Route: 030
  2. MEDROL [Concomitant]
     Active Substance: METHYLPREDNISOLONE

REACTIONS (3)
  - Cough [Not Recovered/Not Resolved]
  - Asphyxia [Not Recovered/Not Resolved]
  - Dyspnoea [Not Recovered/Not Resolved]
